FAERS Safety Report 8570005 (Version 2)
Quarter: 2012Q4

REPORT INFORMATION
  Report Type: 
  Country: JP (occurrence: JP)
  Receive Date: 20120518
  Receipt Date: 20121231
  Transmission Date: 20130627
  Serious: Yes (Death, Other)
  Sender: FDA-Public Use
  Company Number: JP-ROCHE-1044935

PATIENT
  Age: 73 Year
  Sex: Male
  Weight: 51 kg

DRUGS (12)
  1. ACTEMRA [Suspect]
     Indication: CASTLEMAN^S DISEASE
     Route: 041
     Dates: start: 20111214, end: 20120111
  2. ACTEMRA [Suspect]
     Route: 041
     Dates: start: 20120201, end: 20120427
  3. BAKTAR [Concomitant]
     Indication: PROPHYLAXIS
     Route: 048
     Dates: start: 20111214
  4. ISCOTIN [Concomitant]
     Indication: PROPHYLAXIS
     Route: 048
     Dates: start: 20111214
  5. ITRIZOLE [Concomitant]
     Indication: PROPHYLAXIS
     Route: 048
     Dates: start: 20111214
  6. PREDNISOLONE ACETATE [Concomitant]
     Route: 042
     Dates: start: 20111214, end: 20111219
  7. PREDNISOLONE ACETATE [Concomitant]
     Route: 048
     Dates: start: 20111220, end: 20120112
  8. PREDNISOLONE ACETATE [Concomitant]
     Route: 048
     Dates: start: 20120112, end: 20120209
  9. PREDNISOLONE ACETATE [Concomitant]
     Route: 048
     Dates: start: 20120210, end: 201205
  10. NEXIUM [Concomitant]
     Route: 048
     Dates: start: 20111214
  11. PYDOXAL [Concomitant]
     Route: 048
     Dates: start: 20111214
  12. LENDORMIN [Concomitant]
     Route: 048
     Dates: start: 20111214

REACTIONS (5)
  - Respiratory failure [Fatal]
  - Neoplasm malignant [Unknown]
  - White blood cell count increased [Not Recovered/Not Resolved]
  - Neutrophil count increased [Not Recovered/Not Resolved]
  - Limb injury [Unknown]
